FAERS Safety Report 8543055-5 (Version None)
Quarter: 2012Q3

REPORT INFORMATION
  Report Type: 
  Country: None (occurrence: None)
  Receive Date: 20120727
  Receipt Date: 20120719
  Transmission Date: 20120928
  Serious: Yes (Other)
  Sender: FDA-Public Use
  Company Number: CA-JNJFOC-20120702521

PATIENT
  Sex: Female
  Weight: 76 kg

DRUGS (6)
  1. HYDROCORTISONE [Concomitant]
     Indication: PREMEDICATION
     Route: 042
  2. PREDNISONE [Concomitant]
     Dosage: TAPERING DOWN
     Route: 048
  3. REMICADE [Suspect]
     Indication: CROHN'S DISEASE
     Dosage: 4TH DOSE
     Route: 042
     Dates: start: 20120704
  4. ACETAMINOPHEN [Concomitant]
     Route: 048
  5. REMICADE [Suspect]
     Route: 042
     Dates: start: 20120316
  6. BENADRYL [Concomitant]
     Indication: PREMEDICATION
     Route: 042

REACTIONS (10)
  - JOINT SWELLING [None]
  - DIARRHOEA [None]
  - WHEEZING [None]
  - COUGH [None]
  - CHILLS [None]
  - ARTHRALGIA [None]
  - INFUSION RELATED REACTION [None]
  - MUSCULOSKELETAL STIFFNESS [None]
  - HEADACHE [None]
  - RASH ERYTHEMATOUS [None]
